FAERS Safety Report 20696345 (Version 2)
Quarter: 2022Q2

REPORT INFORMATION
  Report Type: Spontaneous
  Country: JP (occurrence: JP)
  Receive Date: 20220411
  Receipt Date: 20220518
  Transmission Date: 20220720
  Serious: Yes (Hospitalization)
  Sender: FDA-Public Use
  Company Number: JP-GILEAD-2022-0575968

PATIENT
  Age: 71 Year
  Sex: Female
  Weight: 46 kg

DRUGS (4)
  1. VEKLURY [Suspect]
     Active Substance: REMDESIVIR
     Indication: COVID-19
     Dosage: 200 MG
     Route: 041
     Dates: start: 20220328, end: 20220328
  2. VEKLURY [Suspect]
     Active Substance: REMDESIVIR
     Indication: Pyrexia
     Dosage: 100 MG, QD
     Route: 041
     Dates: start: 20220329, end: 20220329
  3. LANSOPRAZOLE [Concomitant]
     Active Substance: LANSOPRAZOLE
     Dosage: 30 MG
  4. AMINO ACIDS\DEXTROSE\ELECTROLYTES NOS\VITAMINS [Concomitant]
     Active Substance: AMINO ACIDS\DEXTROSE\ELECTROLYTES NOS\VITAMINS
     Dosage: 500 ML

REACTIONS (1)
  - Hepatic function abnormal [Recovering/Resolving]

NARRATIVE: CASE EVENT DATE: 20220330
